FAERS Safety Report 17228431 (Version 5)
Quarter: 2020Q1

REPORT INFORMATION
  Report Type: Spontaneous
  Country: US (occurrence: US)
  Receive Date: 20200103
  Receipt Date: 20200319
  Transmission Date: 20200409
  Serious: Yes (Hospitalization, Other)
  Sender: FDA-Public Use
  Company Number: US-CELGENEUS-USA-20191211295

PATIENT
  Age: 86 Year
  Sex: Male

DRUGS (2)
  1. REVLIMID [Suspect]
     Active Substance: LENALIDOMIDE
     Dosage: 10 MILLIGRAM
     Route: 048
     Dates: start: 20190930, end: 20191205
  2. REVLIMID [Suspect]
     Active Substance: LENALIDOMIDE
     Indication: PLASMA CELL MYELOMA
     Dosage: 10 MILLIGRAM
     Route: 048
     Dates: start: 20190322, end: 2019

REACTIONS (6)
  - Neoplasm [Unknown]
  - Systemic inflammatory response syndrome [Unknown]
  - Sepsis [Recovering/Resolving]
  - Pneumonia [Recovering/Resolving]
  - Cough [Unknown]
  - Fall [Unknown]

NARRATIVE: CASE EVENT DATE: 2019
